FAERS Safety Report 24455584 (Version 2)
Quarter: 2024Q4

REPORT INFORMATION
  Report Type: Report from Study
  Country: CA (occurrence: CA)
  Receive Date: 20241017
  Receipt Date: 20241018
  Transmission Date: 20250115
  Serious: No
  Sender: ROCHE
  Company Number: CA-ROCHE-3493762

PATIENT
  Sex: Female

DRUGS (10)
  1. RITUXAN [Suspect]
     Active Substance: RITUXIMAB
     Indication: Rheumatoid arthritis
     Dosage: RECENT DOSE: 08/JAN/2024? FREQUENCY TEXT:DAY 1, DAY 15
     Route: 042
     Dates: start: 20150203
  2. ACETAMINOPHEN [Concomitant]
     Active Substance: ACETAMINOPHEN
     Dates: start: 20150203, end: 20200318
  3. ACETAMINOPHEN [Concomitant]
     Active Substance: ACETAMINOPHEN
     Dates: start: 20200401, end: 20200401
  4. DIPHENHYDRAMINE HYDROCHLORIDE [Concomitant]
     Active Substance: DIPHENHYDRAMINE HYDROCHLORIDE
     Dates: start: 20150203
  5. FOLIC ACID [Concomitant]
     Active Substance: FOLIC ACID
  6. IUD (UNK INGREDIENTS) [Concomitant]
  7. METHOTREXATE [Concomitant]
     Active Substance: METHOTREXATE
     Dates: start: 200605
  8. METHYLPREDNISOLONE [Concomitant]
     Active Substance: METHYLPREDNISOLONE
     Dates: start: 20150203
  9. OMEGA 3 [Concomitant]
     Active Substance: CAPSAICIN
  10. PREDNISONE [Concomitant]
     Active Substance: PREDNISONE

REACTIONS (2)
  - Off label use [Unknown]
  - No adverse event [Unknown]
